FAERS Safety Report 21594997 (Version 1)
Quarter: 2022Q4

REPORT INFORMATION
  Report Type: Spontaneous
  Country: JP (occurrence: JP)
  Receive Date: 20221115
  Receipt Date: 20221115
  Transmission Date: 20230112
  Serious: Yes (Other)
  Sender: FDA-Public Use
  Company Number: JP-SUN PHARMACEUTICAL INDUSTRIES LTD-2022R1-363381

PATIENT
  Age: 84 Year
  Sex: Female

DRUGS (6)
  1. DONEPEZIL [Suspect]
     Active Substance: DONEPEZIL
     Indication: Dementia Alzheimer^s type
     Dosage: UNK
     Route: 065
  2. GALANTAMINE [Suspect]
     Active Substance: GALANTAMINE
     Indication: Dementia Alzheimer^s type
     Dosage: 8 MILLIGRAM, DAILY
     Route: 065
  3. ASPIRIN [Concomitant]
     Active Substance: ASPIRIN
     Indication: Cerebral infarction
     Dosage: 100 MILLIGRAM, DAILY
     Route: 065
  4. MEMANTINE [Concomitant]
     Active Substance: MEMANTINE
     Indication: Dementia Alzheimer^s type
     Dosage: 10 MILLIGRAM, DAILY
     Route: 065
  5. RAMELTEON [Concomitant]
     Active Substance: RAMELTEON
     Indication: Dementia Alzheimer^s type
     Dosage: 8 MILLIGRAM, DAILY
     Route: 065
  6. VONOPRAZAN [Concomitant]
     Active Substance: VONOPRAZAN
     Indication: Chronic gastritis
     Dosage: 10 MILLIGRAM, DAILY
     Route: 065

REACTIONS (1)
  - Electrocardiogram QT prolonged [Not Recovered/Not Resolved]
